FAERS Safety Report 22218213 (Version 1)
Quarter: 2023Q2

REPORT INFORMATION
  Report Type: Spontaneous
  Country: US (occurrence: US)
  Receive Date: 20230417
  Receipt Date: 20230417
  Transmission Date: 20230722
  Serious: No
  Sender: FDA-Public Use
  Company Number: US-drreddys-SPO/USA/23/0163346

PATIENT
  Age: 32 Year

DRUGS (2)
  1. ZENATANE [Suspect]
     Active Substance: ISOTRETINOIN
     Indication: Acne
     Dosage: RMA ISSUE DATES: 21 NOVEMBER 2022 12:30:37 PM, 22 DECEMBER 2022 12:45:18 PM, 23 JANUARY 2023 11:37:3
  2. ZENATANE [Suspect]
     Active Substance: ISOTRETINOIN
     Dosage: RMA ISSUE DATES: 21 FEBRUARY 2022 11:02:20 AM, 14 MARCH 2022 12:19:13 PM, 21 APRIL 2022 04:24:34 PM,

REACTIONS (2)
  - Drug ineffective [Unknown]
  - Product quality issue [Unknown]
